FAERS Safety Report 6162024-6 (Version None)
Quarter: 2009Q2

REPORT INFORMATION
  Report Type: 
  Country: None (occurrence: None)
  Receive Date: 20090417
  Receipt Date: 20090417
  Transmission Date: 20091009
  Serious: Yes (Hospitalization)
  Sender: FDA-Public Use
  Company Number: None

PATIENT
  Sex: Female
  Weight: 65.45 kg

DRUGS (1)
  1. IRON SUCROSE [Suspect]
     Dates: start: 20090309, end: 20090309

REACTIONS (4)
  - ABDOMINAL PAIN [None]
  - MUSCLE SPASMS [None]
  - PAIN IN EXTREMITY [None]
  - URTICARIA [None]
